FAERS Safety Report 17965248 (Version 1)
Quarter: 2020Q2

REPORT INFORMATION
  Report Type: Spontaneous
  Country: US (occurrence: US)
  Receive Date: 20200630
  Receipt Date: 20200630
  Transmission Date: 20200714
  Serious: No
  Sender: FDA-Public Use
  Company Number: US-PFIZER INC-2020246542

PATIENT
  Sex: Male

DRUGS (1)
  1. LATANOPROST. [Suspect]
     Active Substance: LATANOPROST
     Dosage: UNK
     Route: 048
     Dates: start: 20200619

REACTIONS (4)
  - Intentional product use issue [Unknown]
  - Burning sensation [Unknown]
  - Product odour abnormal [Unknown]
  - Poor quality product administered [Unknown]
